FAERS Safety Report 11923219 (Version 1)
Quarter: 2016Q1

REPORT INFORMATION
  Report Type: Spontaneous
  Country: CA (occurrence: CA)
  Receive Date: 20160118
  Receipt Date: 20160118
  Transmission Date: 20160526
  Serious: Yes (Other)
  Sender: FDA-Public Use
  Company Number: CA-009507513-1309CAN013912

PATIENT
  Age: 49 Year
  Sex: Female

DRUGS (1)
  1. NUVARING [Suspect]
     Active Substance: ETHINYL ESTRADIOL\ETONOGESTREL
     Indication: MENSTRUAL CYCLE MANAGEMENT
     Dosage: 1 RING FOR 3 WEEKS
     Route: 067
     Dates: start: 20120105, end: 20120920

REACTIONS (9)
  - Weight increased [Recovered/Resolved]
  - Pollakiuria [Not Recovered/Not Resolved]
  - Breast enlargement [Recovered/Resolved]
  - Vulvovaginal discomfort [Recovered/Resolved]
  - Cystitis [Not Recovered/Not Resolved]
  - Drug hypersensitivity [Unknown]
  - Dysuria [Not Recovered/Not Resolved]
  - Device expulsion [Recovered/Resolved]
  - Urinary incontinence [Not Recovered/Not Resolved]

NARRATIVE: CASE EVENT DATE: 20120820
